FAERS Safety Report 5401376-9 (Version None)
Quarter: 2007Q3

REPORT INFORMATION
  Report Type: 
  Country: None (occurrence: None)
  Receive Date: 20070731
  Receipt Date: 20070724
  Transmission Date: 20080115
  Serious: Yes (Hospitalization)
  Sender: FDA-Public Use
  Company Number: B0479337A

PATIENT
  Age: 10 Year
  Sex: Female
  Weight: 23.2 kg

DRUGS (13)
  1. ALKERAN [Suspect]
     Indication: STEM CELL TRANSPLANT
     Dosage: 55MG PER DAY
     Route: 042
     Dates: start: 20070709, end: 20070711
  2. FLUDARABINE PHOSPHATE [Suspect]
     Indication: STEM CELL TRANSPLANT
     Dosage: 20MG PER DAY
     Route: 042
     Dates: start: 20070705, end: 20070708
  3. ZADITEN [Suspect]
     Dosage: .99MG THREE TIMES PER DAY
     Route: 048
     Dates: start: 20070630, end: 20070711
  4. HYDROXYZINE PAMOATE [Suspect]
     Indication: SEDATION
     Dosage: 20MG PER DAY
     Route: 042
     Dates: start: 20070711, end: 20070711
  5. PENTAZOCINE LACTATE [Suspect]
     Indication: SEDATION
     Dosage: 12MG PER DAY
     Route: 042
     Dates: start: 20070711, end: 20070711
  6. BAKTAR [Concomitant]
     Indication: DRUG USE FOR UNKNOWN INDICATION
     Route: 048
  7. DIFLUCAN [Concomitant]
     Indication: INFECTION PROPHYLAXIS
     Dosage: 200MG UNKNOWN
     Route: 048
     Dates: start: 20060529
  8. KYTRIL [Concomitant]
     Dosage: 2MG UNKNOWN
     Route: 042
     Dates: start: 20070705, end: 20070711
  9. HEPARIN [Concomitant]
     Indication: INFECTION PROPHYLAXIS
     Dosage: 2G UNKNOWN
     Route: 042
     Dates: start: 20070703
  10. GAMIMUNE N 5% [Concomitant]
     Indication: INFECTION PROPHYLAXIS
     Dosage: 2.5G UNKNOWN
     Route: 042
     Dates: start: 20070703, end: 20070703
  11. RADIATION [Concomitant]
     Dates: start: 20060401
  12. CHEMOTHERAPY [Concomitant]
     Dates: start: 20060601
  13. UNKNOWN DRUG [Concomitant]

REACTIONS (11)
  - ABDOMINAL PAIN UPPER [None]
  - BEDRIDDEN [None]
  - CONVULSION [None]
  - DIZZINESS [None]
  - DYSSTASIA [None]
  - FATIGUE [None]
  - LOSS OF CONSCIOUSNESS [None]
  - MUSCULAR WEAKNESS [None]
  - PHOTOSENSITIVITY REACTION [None]
  - TOXIC ENCEPHALOPATHY [None]
  - VITREOUS FLOATERS [None]
